FAERS Safety Report 5252182-X (Version None)
Quarter: 2007Q1

REPORT INFORMATION
  Report Type: 
  Country: None (occurrence: None)
  Receive Date: 20061201
  Receipt Date: 20060728
  Transmission Date: 20070707
  Serious: No
  Sender: FDA-Public Use
  Company Number: 2006PV018477

PATIENT
  Age: 35 Year
  Sex: Male
  Weight: 87.0906 kg

DRUGS (2)
  1. BYETTA [Suspect]
     Indication: DIABETES MELLITUS NON-INSULIN-DEPENDENT
     Dosage: 5 MCG; BID; SC
     Route: 058
     Dates: start: 20060601
  2. METFORMIN [Concomitant]

REACTIONS (4)
  - ASTHENIA [None]
  - INJECTION SITE PAIN [None]
  - NAUSEA [None]
  - WEIGHT DECREASED [None]
